FAERS Safety Report 9904677 (Version 2)
Quarter: 2014Q2

REPORT INFORMATION
  Report Type: Spontaneous
  Country: IT (occurrence: IT)
  Receive Date: 20140218
  Receipt Date: 20140421
  Transmission Date: 20141212
  Serious: Yes (Hospitalization)
  Sender: FDA-Public Use
  Company Number: IT-SA-2014SA017242

PATIENT
  Age: 85 Year
  Sex: Female

DRUGS (5)
  1. FUROSEMIDE [Suspect]
     Indication: PRODUCT USED FOR UNKNOWN INDICATION
     Route: 065
     Dates: start: 20130101, end: 20131222
  2. IGROSELES [Suspect]
     Indication: PRODUCT USED FOR UNKNOWN INDICATION
     Route: 065
     Dates: start: 20130101, end: 20131222
  3. DIBASE [Concomitant]
     Dosage: 10.000IU/ML
  4. KCL-RETARD [Concomitant]
     Dosage: STRENGTH: 600 MG
  5. PANTOPRAZOLE SODIUM [Concomitant]

REACTIONS (1)
  - Renal failure [Recovering/Resolving]
